FAERS Safety Report 24160850 (Version 1)
Quarter: 2024Q3

REPORT INFORMATION
  Report Type: Spontaneous
  Country: CN (occurrence: CN)
  Receive Date: 20240801
  Receipt Date: 20240801
  Transmission Date: 20241016
  Serious: Yes (Hospitalization)
  Sender: Haleon PLC
  Company Number: CN-HALEON-2189765

PATIENT
  Age: 45 Year
  Sex: Female
  Weight: 65 kg

DRUGS (1)
  1. IBUPROFEN [Suspect]
     Active Substance: IBUPROFEN
     Indication: Pyrexia
     Route: 048
     Dates: start: 20240515, end: 20240529

REACTIONS (3)
  - Hepatic failure [Recovering/Resolving]
  - Jaundice [Recovering/Resolving]
  - Gallbladder enlargement [Recovering/Resolving]

NARRATIVE: CASE EVENT DATE: 20240529
